FAERS Safety Report 8602104 (Version 5)
Quarter: 2012Q4

REPORT INFORMATION
  Report Type: 
  Country: DE (occurrence: DE)
  Receive Date: 20120607
  Receipt Date: 20121005
  Transmission Date: 20130627
  Serious: Yes (Disabling, Other)
  Sender: FDA-Public Use
  Company Number: DE-RANBAXY-2012RR-56973

PATIENT
  Age: 72 Year
  Sex: Female

DRUGS (3)
  1. OFLOXACIN [Suspect]
     Indication: CYSTITIS NONINFECTIVE
     Dosage: 1 DF, qd
     Route: 048
     Dates: start: 20120429, end: 20120501
  2. OFLOXACIN [Suspect]
     Dosage: 0.5 DF, qd
     Route: 048
     Dates: start: 20120502, end: 20120503
  3. CRANBERRY JUICE [Suspect]
     Indication: PRODUCT USED FOR UNKNOWN INDICATION
     Dosage: UNK
     Route: 065

REACTIONS (6)
  - Tendon rupture [Recovering/Resolving]
  - Ligament sprain [Recovering/Resolving]
  - Haematoma [Recovering/Resolving]
  - Necrosis [Unknown]
  - Pain [Unknown]
  - Oedema peripheral [Not Recovered/Not Resolved]
